FAERS Safety Report 10977560 (Version 2)
Quarter: 2015Q2

REPORT INFORMATION
  Report Type: Spontaneous
  Country: US (occurrence: US)
  Receive Date: 20150402
  Receipt Date: 20150408
  Transmission Date: 20150821
  Serious: Yes (Death)
  Sender: FDA-Public Use
  Company Number: US-HORIZON-ACT-0053-2015

PATIENT
  Age: 78 Year
  Sex: Female

DRUGS (9)
  1. ACTIMMUNE [Suspect]
     Active Substance: INTERFERON GAMMA-1B
     Indication: IDIOPATHIC PULMONARY FIBROSIS
     Dates: start: 201004
  2. METOPROLOL [Concomitant]
     Active Substance: METOPROLOL
  3. SENNA [Concomitant]
     Active Substance: SENNA LEAF\SENNOSIDES\SENNOSIDES A AND B
  4. MULTIVITAMIN [Concomitant]
     Active Substance: VITAMINS
  5. DIGOXIN. [Concomitant]
     Active Substance: DIGOXIN
  6. COUMADIN [Concomitant]
     Active Substance: WARFARIN SODIUM
  7. POTASSIUM [Concomitant]
     Active Substance: POTASSIUM
  8. IRON [Concomitant]
     Active Substance: IRON
  9. MELATONIN [Concomitant]
     Active Substance: MELATONIN

REACTIONS (2)
  - Death [Fatal]
  - Off label use [Unknown]

NARRATIVE: CASE EVENT DATE: 201004
